FAERS Safety Report 6220447-0 (Version None)
Quarter: 2009Q2

REPORT INFORMATION
  Report Type: 
  Country: None (occurrence: None)
  Receive Date: 20090610
  Receipt Date: 20090603
  Transmission Date: 20091009
  Serious: Yes (Other)
  Sender: FDA-Public Use
  Company Number: BR-BAYER-200922243GPV

PATIENT
  Age: 45 Year
  Sex: Male

DRUGS (6)
  1. CIPROFLOXACIN [Suspect]
     Indication: CATHETER RELATED INFECTION
     Route: 065
     Dates: start: 20010101, end: 20010101
  2. LEVOFLOXACIN [Suspect]
     Indication: ABDOMINAL OPERATION
     Route: 042
     Dates: start: 20010101, end: 20010101
  3. VANCOMYCIN HCL [Suspect]
     Indication: SEPTIC SHOCK
     Route: 042
     Dates: start: 20010101, end: 20010101
  4. CEFTAZIDIME [Suspect]
     Indication: CATHETER RELATED INFECTION
     Route: 042
     Dates: start: 20010101, end: 20010101
  5. IMIPENEM [Suspect]
     Indication: SEPTIC SHOCK
     Route: 042
     Dates: start: 20010101, end: 20010101
  6. CEFEPIME [Suspect]
     Indication: CATHETER RELATED INFECTION
     Route: 042
     Dates: start: 20010101, end: 20010101

REACTIONS (3)
  - CENTRAL LINE INFECTION [None]
  - PATHOGEN RESISTANCE [None]
  - SEPTIC SHOCK [None]
